FAERS Safety Report 7184386-3 (Version None)
Quarter: 2010Q4

REPORT INFORMATION
  Report Type: 
  Country: None (occurrence: None)
  Receive Date: 20101222
  Receipt Date: 20101220
  Transmission Date: 20110411
  Serious: Yes (Hospitalization)
  Sender: FDA-Public Use
  Company Number: US-BRISTOL-MYERS SQUIBB COMPANY-15451891

PATIENT
  Age: 80 Year
  Sex: Male

DRUGS (1)
  1. ABILIFY [Suspect]
     Dates: start: 20101001

REACTIONS (1)
  - HALLUCINATION [None]
